FAERS Safety Report 13669236 (Version 3)
Quarter: 2017Q3

REPORT INFORMATION
  Report Type: Spontaneous
  Country: US (occurrence: US)
  Receive Date: 20170620
  Receipt Date: 20170823
  Transmission Date: 20171127
  Serious: Yes (Hospitalization, Other)
  Sender: FDA-Public Use
  Company Number: US-PFIZER INC-2017266964

PATIENT
  Age: 65 Year
  Sex: Female
  Weight: 67.13 kg

DRUGS (15)
  1. ORTHO-NOVUM [Concomitant]
     Active Substance: ETHINYL ESTRADIOL\NORETHINDRONE
     Indication: GASTRITIS
     Dosage: 1 DF, DAILY (35MG/MCG TABLET ONE A DAY)
     Route: 048
  2. LEVOTHYROXINE. [Concomitant]
     Active Substance: LEVOTHYROXINE
     Indication: THYROIDECTOMY
     Dosage: 75 UG, 1X/DAY
     Route: 048
  3. WARFARIN [Concomitant]
     Active Substance: WARFARIN
     Indication: ANTICOAGULANT THERAPY
     Dosage: 5MG THIS FRI, NEXT MON WED AND FRI. 6 MG SUN, TUES. AND THURS THIS WEEK
     Route: 048
  4. MIDODRINE [Concomitant]
     Active Substance: MIDODRINE
     Indication: HYPOTENSION
     Dosage: 2.5 MG, 3X/DAY
     Route: 048
     Dates: start: 201703
  5. FERROUS SULFATE. [Concomitant]
     Active Substance: FERROUS SULFATE
     Indication: MINERAL SUPPLEMENTATION
     Dosage: 325 MG, 1X/DAY (WITH DINNER)
  6. POLYMYXIN [Concomitant]
     Active Substance: POLYMYXIN
     Indication: ANTIBIOTIC THERAPY
     Dosage: 4 DROPS WITH EACH DRESSING CHANGE
     Dates: start: 201703
  7. SILDENAFIL CITRATE. [Suspect]
     Active Substance: SILDENAFIL CITRATE
     Indication: CARDIOMYOPATHY
     Dosage: 20 MG, 3X/DAY
     Route: 048
     Dates: start: 201703
  8. SPIRONOLACTONE. [Concomitant]
     Active Substance: SPIRONOLACTONE
     Indication: CARDIAC FAILURE
     Dosage: 25 MG, 1X/DAY
     Dates: start: 2015
  9. CARAFATE [Concomitant]
     Active Substance: SUCRALFATE
     Indication: GASTRITIS
     Dosage: 10 ML, 4X/DAY (BEFORE MEALS AND NIGHTLY)
     Route: 048
  10. LYRICA [Suspect]
     Active Substance: PREGABALIN
     Indication: MULTIPLE SCLEROSIS
     Dosage: 225 MG, 2X/DAY
     Route: 048
  11. ASPIRIN. [Concomitant]
     Active Substance: ASPIRIN
     Indication: CARDIAC DISORDER
     Dosage: 81 MG, 1X/DAY
     Route: 048
  12. POTASSIUM CHLORIDE. [Concomitant]
     Active Substance: POTASSIUM CHLORIDE
     Dosage: 20 MEQ, 2X/DAY
     Route: 048
  13. COLCHICINE. [Concomitant]
     Active Substance: COLCHICINE
     Indication: CARDIAC DISORDER
     Dosage: 6.6 MG, 1X/DAY
     Route: 048
     Dates: start: 201703
  14. FAMOTIDINE. [Concomitant]
     Active Substance: FAMOTIDINE
     Indication: PROPHYLAXIS
     Dosage: 20 MG, 2X/DAY
     Route: 048
     Dates: start: 201703
  15. FUROSEMIDE. [Concomitant]
     Active Substance: FUROSEMIDE
     Indication: FLUID RETENTION
     Dosage: 40MG IN THE MORNING AND 20 MG IN THE EVENING
     Route: 048

REACTIONS (10)
  - Device battery issue [Recovered/Resolved]
  - Application site haematoma [Unknown]
  - Full blood count decreased [Unknown]
  - Impaired gastric emptying [Recovering/Resolving]
  - Gastrointestinal haemorrhage [Recovered/Resolved]
  - Application site pain [Unknown]
  - Product use in unapproved indication [Unknown]
  - Fatigue [Unknown]
  - Dizziness [Unknown]
  - Malaise [Unknown]

NARRATIVE: CASE EVENT DATE: 20170506
